FAERS Safety Report 7134367-0 (Version None)
Quarter: 2010Q4

REPORT INFORMATION
  Report Type: 
  Country: None (occurrence: None)
  Receive Date: 20101203
  Receipt Date: 20101119
  Transmission Date: 20110411
  Serious: Yes (Hospitalization)
  Sender: FDA-Public Use
  Company Number: DE-PFIZER INC-2010152864

PATIENT
  Age: 62 Year
  Sex: Male

DRUGS (5)
  1. TREVILOR RETARD [Suspect]
     Dosage: 75 MG, 1X/DAY
     Route: 048
     Dates: start: 20100830, end: 20100903
  2. TREVILOR RETARD [Interacting]
     Dosage: 150 MG, 1X/DAY
     Route: 048
     Dates: start: 20100904, end: 20100907
  3. LYRICA [Interacting]
     Dosage: 50 MG, 1X/DAY
     Route: 048
     Dates: start: 20100830, end: 20100902
  4. LYRICA [Interacting]
     Dosage: 75 MG, 1X/DAY
     Route: 048
     Dates: start: 20100903, end: 20100907
  5. LYRICA [Interacting]
     Dosage: 100 MG, 1X/DAY
     Route: 048
     Dates: start: 20100908, end: 20100908

REACTIONS (7)
  - DECREASED APPETITE [None]
  - DIZZINESS [None]
  - DRUG INTERACTION [None]
  - HYPERTENSION [None]
  - NAUSEA [None]
  - RETCHING [None]
  - TREMOR [None]
